FAERS Safety Report 10602744 (Version 1)
Quarter: 2014Q4

REPORT INFORMATION
  Report Type: Spontaneous
  Country: ID (occurrence: ID)
  Receive Date: 20141124
  Receipt Date: 20141124
  Transmission Date: 20150529
  Serious: Yes (Other)
  Sender: FDA-Public Use
  Company Number: PHHY2014ID148515

PATIENT
  Age: 34 Year
  Sex: Female

DRUGS (1)
  1. CEFADROXIL. [Suspect]
     Active Substance: CEFADROXIL
     Indication: PRODUCT USED FOR UNKNOWN INDICATION
     Dosage: 500 MG, TID
     Route: 065

REACTIONS (6)
  - Oedema [Recovering/Resolving]
  - Hyperkeratosis [Recovering/Resolving]
  - Skin plaque [Recovering/Resolving]
  - Lichenoid keratosis [Recovering/Resolving]
  - Macule [Recovering/Resolving]
  - Erythema [Recovering/Resolving]
